FAERS Safety Report 6262697-3 (Version None)
Quarter: 2009Q3

REPORT INFORMATION
  Report Type: 
  Country: None (occurrence: None)
  Receive Date: 20090708
  Receipt Date: 20090629
  Transmission Date: 20100115
  Serious: Yes (Hospitalization, Other)
  Sender: FDA-Public Use
  Company Number: 2008US002061

PATIENT
  Age: 6 Year
  Sex: Female

DRUGS (2)
  1. PROTOPIC [Suspect]
     Indication: ECZEMA
     Dosage: 0.04 %, UNK, TOPICAL
     Route: 061
     Dates: start: 20031001, end: 20060801
  2. ELIDEL [Suspect]
     Indication: ECZEMA
     Dosage: 100 MG, BID, UNK
     Route: 065
     Dates: start: 20031001, end: 20060801

REACTIONS (6)
  - ABDOMINAL PAIN UPPER [None]
  - LUNG NEOPLASM MALIGNANT [None]
  - MUCOEPIDERMOID CARCINOMA [None]
  - PYREXIA [None]
  - RESPIRATORY DISORDER [None]
  - STREPTOCOCCAL IDENTIFICATION TEST POSITIVE [None]
